FAERS Safety Report 18280109 (Version 1)
Quarter: 2020Q3

REPORT INFORMATION
  Report Type: Other
  Country: CN (occurrence: CN)
  Receive Date: 20200918
  Receipt Date: 20200918
  Transmission Date: 20201103
  Serious: Yes (Life-Threatening, Hospitalization)
  Sender: FDA-Public Use
  Company Number: CN-ROCHE-2676799

PATIENT
  Age: 6 Year
  Sex: Male

DRUGS (2)
  1. PEGINTERFERON ALFA?2A. [Suspect]
     Active Substance: PEGINTERFERON ALFA-2A
     Indication: HEPATITIS B
     Route: 065
  2. VIDARABINE [Concomitant]
     Active Substance: VIDARABINE

REACTIONS (1)
  - Haemophagocytic lymphohistiocytosis [Recovered/Resolved]
